FAERS Safety Report 20533708 (Version 3)
Quarter: 2022Q4

REPORT INFORMATION
  Report Type: Spontaneous
  Country: FR (occurrence: FR)
  Receive Date: 20220301
  Receipt Date: 20221006
  Transmission Date: 20230113
  Serious: Yes (Hospitalization)
  Sender: FDA-Public Use
  Company Number: FR-AFSSAPS-AM20220281

PATIENT
  Age: 67 Year
  Sex: Female

DRUGS (3)
  1. AMLODIPINE BESYLATE [Concomitant]
     Active Substance: AMLODIPINE BESYLATE
     Indication: Product used for unknown indication
  2. ASCLERA [Suspect]
     Active Substance: POLIDOCANOL
     Indication: Varicose vein operation
     Route: 042
     Dates: start: 20220125, end: 20220125
  3. IRBESARTAN [Concomitant]
     Active Substance: IRBESARTAN
     Indication: Product used for unknown indication

REACTIONS (3)
  - Hemiparesis [Recovered/Resolved]
  - Aphasia [Recovered/Resolved]
  - Transient ischaemic attack [Recovered/Resolved]

NARRATIVE: CASE EVENT DATE: 20220125
